FAERS Safety Report 25919122 (Version 1)
Quarter: 2025Q4

REPORT INFORMATION
  Report Type: Report from Study
  Country: US (occurrence: US)
  Receive Date: 20251014
  Receipt Date: 20251014
  Transmission Date: 20260117
  Serious: Yes (Death, Other)
  Sender: ACADIA PHARMACEUTICALS
  Company Number: US-ACADIA PHARMACEUTICALS INC.-ACA-2025-PIM-011195

PATIENT
  Age: 79 Year
  Sex: Male

DRUGS (9)
  1. NUPLAZID [Suspect]
     Active Substance: PIMAVANSERIN TARTRATE
     Indication: Parkinson^s disease
     Dosage: 34 MILLIGRAM, QD
     Route: 048
     Dates: start: 20231128, end: 20251003
  2. LEXAPRO [Concomitant]
     Active Substance: ESCITALOPRAM OXALATE
  3. SINEMET [Concomitant]
     Active Substance: CARBIDOPA\LEVODOPA
  4. MIDODRINE [Concomitant]
     Active Substance: MIDODRINE
  5. NEBIVOLOL [Concomitant]
     Active Substance: NEBIVOLOL
  6. PRAVASTATIN [Concomitant]
     Active Substance: PRAVASTATIN
  7. DONEPEZIL [Concomitant]
     Active Substance: DONEPEZIL
  8. SEROQUEL [Concomitant]
     Active Substance: QUETIAPINE FUMARATE
  9. HYDROCHLOROTHIAZIDE [Concomitant]
     Active Substance: HYDROCHLOROTHIAZIDE

REACTIONS (1)
  - Death [Fatal]

NARRATIVE: CASE EVENT DATE: 20251003
